FAERS Safety Report 9436629 (Version 1)
Quarter: 2013Q3

REPORT INFORMATION
  Report Type: Spontaneous
  Country: US (occurrence: None)
  Receive Date: 20130801
  Receipt Date: 20130801
  Transmission Date: 20140515
  Serious: No
  Sender: FDA-Public Use
  Company Number: None

PATIENT
  Age: 60 Year
  Sex: Female

DRUGS (1)
  1. REBIF [Suspect]
     Indication: MULTIPLE SCLEROSIS
     Dosage: 44MCG TIW SUBCUTANEOUS
     Route: 058
     Dates: start: 20100430

REACTIONS (5)
  - Scab [None]
  - Rash [None]
  - Rash pruritic [None]
  - Haemorrhage [None]
  - Scratch [None]
